FAERS Safety Report 9914267 (Version 1)
Quarter: 2014Q1

REPORT INFORMATION
  Report Type: Spontaneous
  Country: US (occurrence: None)
  Receive Date: 20140218
  Receipt Date: 20140218
  Transmission Date: 20141002
  Serious: Yes (Disabling)
  Sender: FDA-Public Use
  Company Number: 2014-US-001670

PATIENT
  Age: 47 Year
  Sex: Male
  Weight: 131.5 kg

DRUGS (7)
  1. XYREM [Suspect]
     Indication: NARCOLEPSY
     Route: 048
     Dates: start: 201312
  2. XYREM [Suspect]
     Indication: CATAPLEXY
     Route: 048
     Dates: start: 201312
  3. BENADRYL [Suspect]
     Indication: PRODUCT USED FOR UNKNOWN INDICATION
  4. HYDROXYZINE [Suspect]
     Indication: PRODUCT USED FOR UNKNOWN INDICATION
  5. ANTIVIRALS [Concomitant]
  6. ANITBIOTICS [Concomitant]
  7. ANTIFUNGALS [Concomitant]

REACTIONS (8)
  - Sleep disorder [None]
  - Pituitary tumour benign [None]
  - Emotional disorder [None]
  - Inappropriate schedule of drug administration [None]
  - Fatigue [None]
  - Sleep talking [None]
  - Abnormal dreams [None]
  - Nightmare [None]
